FAERS Safety Report 5866119-3 (Version None)
Quarter: 2008Q3

REPORT INFORMATION
  Report Type: 
  Country: None (occurrence: None)
  Receive Date: 20080829
  Receipt Date: 20080818
  Transmission Date: 20090109
  Serious: Yes (Other)
  Sender: FDA-Public Use
  Company Number: US-PFIZER INC-2008068890

PATIENT
  Sex: Female
  Weight: 74.8 kg

DRUGS (10)
  1. CHANTIX [Suspect]
     Indication: SMOKING CESSATION THERAPY
     Route: 048
     Dates: start: 20080801, end: 20080817
  2. ALPRAZOLAM [Suspect]
     Indication: ANXIETY
     Route: 048
  3. ACETYLSALICYLIC ACID SRT [Concomitant]
  4. GABAPENTIN [Concomitant]
  5. PLAVIX [Concomitant]
  6. METOCLOPRAMIDE [Concomitant]
  7. PROTONIX [Concomitant]
  8. OXYBUTYNIN [Concomitant]
  9. SALMON OIL [Concomitant]
     Indication: BLOOD CHOLESTEROL
  10. LORTAB [Concomitant]

REACTIONS (9)
  - ANXIETY [None]
  - CONSTIPATION [None]
  - DEPRESSION [None]
  - DRUG INEFFECTIVE [None]
  - DYSPNOEA [None]
  - FATIGUE [None]
  - INSOMNIA [None]
  - NERVOUSNESS [None]
  - RESTLESSNESS [None]
